FAERS Safety Report 21209218 (Version 1)
Quarter: 2022Q3

REPORT INFORMATION
  Report Type: Other
  Country: GB (occurrence: GB)
  Receive Date: 20220813
  Receipt Date: 20220813
  Transmission Date: 20221026
  Serious: Yes (Disabling, Other)
  Sender: FDA-Public Use
  Company Number: None

PATIENT

DRUGS (6)
  1. MONTELUKAST SODIUM [Suspect]
     Active Substance: MONTELUKAST SODIUM
     Indication: Product used for unknown indication
     Dosage: 4 MILLIGRAM
     Route: 048
  2. CETIRIZINE [Concomitant]
     Active Substance: CETIRIZINE HYDROCHLORIDE
     Indication: Product used for unknown indication
     Dosage: 2.5 MILLILITER, BID
     Route: 065
     Dates: start: 20220629
  3. CLARITHROMYCIN [Concomitant]
     Active Substance: CLARITHROMYCIN
     Indication: Product used for unknown indication
     Dosage: 5 MILLILITER, BID (FOR 5 DAYS)
     Route: 065
     Dates: start: 20220526
  4. BECLOMETHASONE DIPROPIONATE [Concomitant]
     Active Substance: BECLOMETHASONE DIPROPIONATE
     Indication: Product used for unknown indication
     Dosage: 100 MICROGRAM, BID
     Route: 065
     Dates: start: 20220526
  5. BECLOMETHASONE DIPROPIONATE [Concomitant]
     Active Substance: BECLOMETHASONE DIPROPIONATE
     Dosage: 50 MICROGRAM, BID
     Route: 055
     Dates: start: 20220516, end: 20220526
  6. DERMOL [BENZALKONIUM CHLORIDE;CHLORHEXIDINE HYDROCHLORIDE;ISOPROPYL MY [Concomitant]
     Indication: Product used for unknown indication
     Dosage: UNK UNK, PRN (AS NECESSARY)
     Route: 065
     Dates: start: 20220722

REACTIONS (5)
  - Abnormal behaviour [Unknown]
  - Decreased appetite [Unknown]
  - Insomnia [Unknown]
  - Nausea [Unknown]
  - Rash [Recovered/Resolved]

NARRATIVE: CASE EVENT DATE: 20220719
